FAERS Safety Report 5491735-0 (Version None)
Quarter: 2007Q4

REPORT INFORMATION
  Report Type: 
  Country: None (occurrence: None)
  Receive Date: 20071022
  Receipt Date: 20071008
  Transmission Date: 20080405
  Serious: Yes (Other)
  Sender: FDA-Public Use
  Company Number: BR-BAYER-200715968GDS

PATIENT
  Age: 48 Year
  Sex: Female

DRUGS (3)
  1. ASPIRIN [Suspect]
     Route: 048
  2. AMFEPRAMONE [Suspect]
     Route: 048
  3. AMFEPRAMONE [Concomitant]
     Indication: SUICIDE ATTEMPT
     Route: 048

REACTIONS (2)
  - DIZZINESS [None]
  - SUICIDE ATTEMPT [None]
